FAERS Safety Report 24890263 (Version 2)
Quarter: 2025Q1

REPORT INFORMATION
  Report Type: Spontaneous
  Country: FR (occurrence: FR)
  Receive Date: 20250127
  Receipt Date: 20250203
  Transmission Date: 20250408
  Serious: Yes (Hospitalization)
  Sender: FRESENIUS KABI
  Company Number: None

PATIENT
  Age: 81 Year
  Sex: Female
  Weight: 70 kg

DRUGS (3)
  1. TYENNE [Suspect]
     Active Substance: TOCILIZUMAB-AAZG
     Indication: Rheumatoid arthritis
     Route: 042
     Dates: start: 20241129
  2. TYENNE [Suspect]
     Active Substance: TOCILIZUMAB-AAZG
     Dosage: 200 MG ( BATCH OF 400 MG) = 600 MG TOTAL
     Route: 042
     Dates: start: 20241227
  3. TYENNE [Suspect]
     Active Substance: TOCILIZUMAB-AAZG
     Dosage: 200 MG ( BATCH OF 400 MG) = 600 MG TOTAL
     Route: 042
     Dates: start: 20241227

REACTIONS (2)
  - Oxygen saturation decreased [Recovering/Resolving]
  - Urticaria [Recovered/Resolved]

NARRATIVE: CASE EVENT DATE: 20241227
